FAERS Safety Report 5680611-6 (Version None)
Quarter: 2008Q1

REPORT INFORMATION
  Report Type: 
  Country: None (occurrence: None)
  Receive Date: 20080326
  Receipt Date: 20070307
  Transmission Date: 20080703
  Serious: No
  Sender: FDA-Public Use
  Company Number: US-BAUSCH-2007BL000745

PATIENT
  Age: 68 Year
  Sex: Female
  Weight: 68 kg

DRUGS (3)
  1. LEVOBUNOLOL HYDROCHLORIDE [Suspect]
     Indication: DRUG USE FOR UNKNOWN INDICATION
     Route: 047
     Dates: start: 20070201, end: 20070203
  2. TOPROL-XL [Concomitant]
     Indication: HYPERTENSION
     Route: 048
     Dates: start: 20050101
  3. ALTACE [Concomitant]
     Indication: HYPERTENSION
     Route: 048
     Dates: start: 20050301

REACTIONS (4)
  - EYE IRRITATION [None]
  - HYPOAESTHESIA [None]
  - OCULAR HYPERAEMIA [None]
  - PHARMACEUTICAL PRODUCT COMPLAINT [None]
